FAERS Safety Report 7124670 (Version 2)
Quarter: 2013Q3

REPORT INFORMATION
  Report Type: Spontaneous
  Country: US (occurrence: None)
  Receive Date: 20090909
  Receipt Date: 20130709
  Transmission Date: 20140515
  Serious: Yes (Hospitalization, Other)
  Sender: FDA-Public Use
  Company Number: AUR-APL-2009-00511

PATIENT
  Age: 48 Year
  Sex: Male

DRUGS (4)
  1. TOPIRAMATE (TOPIRAMATE) [Suspect]
     Indication: EPILEPSY
  2. POSACONAZOLE [Suspect]
     Indication: ASPERGILLOMA
     Dosage: 200MG - QID -
  3. VALPROATE SODIUM [Concomitant]
  4. AMPHOTERICIN B [Concomitant]

REACTIONS (10)
  - Encephalopathy [None]
  - Stupor [None]
  - Somnolence [None]
  - Decreased appetite [None]
  - Hypophagia [None]
  - Weight decreased [None]
  - Catatonia [None]
  - Drug interaction [None]
  - Toxicity to various agents [None]
  - Decreased appetite [None]
